FAERS Safety Report 5428378-0 (Version None)
Quarter: 2007Q3

REPORT INFORMATION
  Report Type: 
  Country: None (occurrence: None)
  Receive Date: 20070731
  Receipt Date: 20070409
  Transmission Date: 20080115
  Serious: No
  Sender: FDA-Public Use
  Company Number: US200704002046

PATIENT
  Age: 55 Year
  Sex: Female
  Weight: 80.7 kg

DRUGS (4)
  1. BYETTA [Suspect]
     Indication: TYPE 2 DIABETES MELLITUS
     Dosage: 5 UG, 2/D, SUBCUTANEOUS ; 10 UG, 2/D, SUBCUTANEOUS
     Route: 058
     Dates: start: 20060201, end: 20060301
  2. BYETTA [Suspect]
     Indication: TYPE 2 DIABETES MELLITUS
     Dosage: 5 UG, 2/D, SUBCUTANEOUS ; 10 UG, 2/D, SUBCUTANEOUS
     Route: 058
     Dates: start: 20060301
  3. EXENATIDE, DISPOSABLE DEVICE [Concomitant]
  4. BYETTA [Suspect]
     Indication: TYPE 2 DIABETES MELLITUS
     Dosage: 10 UG 2/D SUBCU
     Route: 058
     Dates: start: 20060301

REACTIONS (4)
  - NAUSEA [None]
  - URTICARIA [None]
  - WEIGHT DECREASED [None]
  - WEIGHT INCREASED [None]
